FAERS Safety Report 25845090 (Version 4)
Quarter: 2025Q3

REPORT INFORMATION
  Report Type: Spontaneous
  Country: GB (occurrence: US)
  Receive Date: 20250925
  Receipt Date: 20250925
  Transmission Date: 20251021
  Serious: No
  Sender: SIGMA TAU
  Company Number: GB-LEADIANT BIOSCIENCES, INC.-2024LBI000122

PATIENT
  Age: 30 Year
  Sex: Female

DRUGS (1)
  1. ABELCET [Suspect]
     Active Substance: AMPHOTERICIN B\DIMYRISTOYLPHOSPHATIDYLCHOLINE, DL-\DIMYRISTOYLPHOSPHATIDYLGLYCEROL, DL-
     Indication: Protothecosis
     Route: 042

REACTIONS (1)
  - Hypokalaemia [Unknown]
